FAERS Safety Report 5693207-7 (Version None)
Quarter: 2008Q2

REPORT INFORMATION
  Report Type: 
  Country: None (occurrence: None)
  Receive Date: 20080403
  Receipt Date: 20080325
  Transmission Date: 20081010
  Serious: Yes (Disabling, Other)
  Sender: FDA-Public Use
  Company Number: PHRM2008FR00503

PATIENT
  Age: 62 Year
  Sex: Female

DRUGS (7)
  1. ZOMETA [Suspect]
     Indication: COMPLEX REGIONAL PAIN SYNDROME
     Dosage: 4 MG
     Route: 042
     Dates: start: 20060330, end: 20060630
  2. LYRICA [Concomitant]
     Dosage: 75 MG, TID
  3. NEURONTIN [Concomitant]
     Dosage: 300 MG, TID
  4. DI-ANTALVIC [Concomitant]
  5. RIVOTRIL [Concomitant]
  6. BROMAZEPAM [Concomitant]
  7. VITAMIN B-12 [Concomitant]

REACTIONS (6)
  - BONE DISORDER [None]
  - EXCESSIVE GRANULATION TISSUE [None]
  - OSTEOMYELITIS [None]
  - OSTEONECROSIS [None]
  - TOOTH RESORPTION [None]
  - X-RAY ABNORMAL [None]
